FAERS Safety Report 9681070 (Version 1)
Quarter: 2013Q4

REPORT INFORMATION
  Report Type: Spontaneous
  Country: US (occurrence: None)
  Receive Date: 20131108
  Receipt Date: 20131108
  Transmission Date: 20140711
  Serious: No
  Sender: FDA-Public Use
  Company Number: None

PATIENT
  Age: 24 Year
  Sex: Female
  Weight: 108.86 kg

DRUGS (3)
  1. MIRENA [Suspect]
     Indication: PAIN PROPHYLAXIS
     Dates: start: 20130308, end: 20130818
  2. MIRENA [Suspect]
     Indication: OVARIAN CYST
     Dates: start: 20130308, end: 20130818
  3. MIRENA [Suspect]
     Indication: MENSTRUAL CYCLE MANAGEMENT
     Dates: start: 20130308, end: 20130818

REACTIONS (5)
  - Muscle spasms [None]
  - Abdominal pain [None]
  - Alopecia [None]
  - Device expulsion [None]
  - Hormone level abnormal [None]
